FAERS Safety Report 9919868 (Version 1)
Quarter: 2014Q1

REPORT INFORMATION
  Report Type: Spontaneous
  Country: BR (occurrence: BR)
  Receive Date: 20140224
  Receipt Date: 20140224
  Transmission Date: 20141002
  Serious: Yes (Hospitalization, Other)
  Sender: FDA-Public Use
  Company Number: PHHY2014BR021286

PATIENT
  Age: 52 Year
  Sex: Female
  Weight: 60 kg

DRUGS (2)
  1. TRILEPTAL [Suspect]
     Indication: EPILEPSY
     Dosage: 2 DF, DAILY
     Route: 048
  2. LAMITOR [Concomitant]
     Indication: EPILEPSY
     Dosage: 2 DF, DAILY
     Route: 048

REACTIONS (5)
  - Fall [Recovering/Resolving]
  - Femur fracture [Recovering/Resolving]
  - Blood calcium decreased [Recovered/Resolved]
  - Dyspnoea [Recovered/Resolved]
  - Enuresis [Recovering/Resolving]
